FAERS Safety Report 9998906 (Version 1)
Quarter: 2014Q1

REPORT INFORMATION
  Report Type: Spontaneous
  Country: US (occurrence: US)
  Receive Date: 20140312
  Receipt Date: 20140312
  Transmission Date: 20141002
  Serious: Yes (Other)
  Sender: FDA-Public Use
  Company Number: US-ALEXION PHARMACEUTICALS INC.-A201400749

PATIENT
  Sex: Male
  Weight: 112 kg

DRUGS (1)
  1. SOLIRIS 300MG [Suspect]

REACTIONS (1)
  - Nausea [None]
